FAERS Safety Report 4640221-6 (Version None)
Quarter: 2005Q2

REPORT INFORMATION
  Report Type: 
  Country: None (occurrence: None)
  Receive Date: 20050419
  Receipt Date: 20050419
  Transmission Date: 20051028
  Serious: Yes (Life-Threatening, Hospitalization)
  Sender: FDA-Public Use
  Company Number: None

PATIENT
  Age: 47 Year
  Sex: Male
  Weight: 95.7 kg

DRUGS (17)
  1. HYDROCHLOROTHIAZIDE [Suspect]
     Indication: HYPERTENSION
     Dosage: 25 MG, DAILY, ORAL
     Route: 048
     Dates: start: 20040727, end: 20050212
  2. ALBUTEROL 90/IPRATROP 18MCG [Concomitant]
  3. . [Concomitant]
  4. FLUNISOLIDE 250MCG/MENTHOL [Concomitant]
  5. . [Concomitant]
  6. FORMOTEROL FUMARATE [Concomitant]
  7. CLONAZEPAM [Concomitant]
  8. OLANZAPINE [Concomitant]
  9. PHENOBARBITAL [Concomitant]
  10. SIMVASTATIN [Concomitant]
  11. RANITIDINE HCL [Concomitant]
  12. FOSINOPRIL NA [Concomitant]
  13. ATROPINE/DIPHENOXYLATE [Concomitant]
  14. SULINDAC [Concomitant]
  15. ETODOLAC [Concomitant]
  16. METRONIDAZOLE [Concomitant]
  17. LACTULOSE [Concomitant]

REACTIONS (1)
  - HYPONATRAEMIA [None]
